FAERS Safety Report 5517375-2 (Version None)
Quarter: 2007Q4

REPORT INFORMATION
  Report Type: 
  Country: None (occurrence: None)
  Receive Date: 20071114
  Receipt Date: 20071108
  Transmission Date: 20080405
  Serious: Yes (Hospitalization)
  Sender: FDA-Public Use
  Company Number: NL-MERCK-0711NLD00014

PATIENT
  Sex: Female

DRUGS (1)
  1. TRUSOPT [Suspect]
     Indication: GLAUCOMA
     Route: 047

REACTIONS (3)
  - DEMENTIA [None]
  - HALLUCINATION [None]
  - PSYCHOTIC DISORDER [None]
